FAERS Safety Report 6766353-4 (Version None)
Quarter: 2010Q2

REPORT INFORMATION
  Report Type: 
  Country: None (occurrence: None)
  Receive Date: 20100611
  Receipt Date: 20100524
  Transmission Date: 20101027
  Serious: Yes (Hospitalization, Other)
  Sender: FDA-Public Use
  Company Number: PHEH2004US06334

PATIENT
  Sex: Male
  Weight: 63.492 kg

DRUGS (78)
  1. AREDIA [Suspect]
     Dosage: 90 MG, ONCE/SINGLE
     Route: 042
     Dates: start: 20020201, end: 20020201
  2. ZOMETA [Suspect]
     Indication: METASTASES TO BONE
     Dosage: 4 MG EVERY 4 WEEKS (MONTHLY)
     Route: 042
     Dates: start: 20020201, end: 20040301
  3. THALIDOMIDE [Concomitant]
     Indication: MULTIPLE MYELOMA
     Dosage: 200 MG, QD
     Route: 048
     Dates: start: 20021022, end: 20050401
  4. DEXAMETHASONE [Concomitant]
     Indication: MULTIPLE MYELOMA
     Dosage: 40 MG, QD FOR 4 DAYS EVERY MONTH
     Dates: start: 20020308, end: 20020819
  5. DEXAMETHASONE [Concomitant]
     Dosage: 40 MG QD X 4DAYS Q 2WEEKS
     Dates: start: 20021022, end: 20040201
  6. DEXAMETHASONE [Concomitant]
     Dates: end: 20040201
  7. FENTANYL [Concomitant]
     Indication: PAIN
     Dosage: 75 MCG/HOUR
     Route: 062
     Dates: start: 20020301
  8. LISINOPRIL [Concomitant]
     Indication: HYPERTENSION
     Dosage: 20 MG, QD
     Dates: start: 20000101
  9. ROXICODONE [Concomitant]
     Indication: PAIN
     Dosage: 5-10 MG EVERY 4 HOURS PRN
     Dates: start: 20020301
  10. PROTONIX [Concomitant]
     Indication: GASTROOESOPHAGEAL REFLUX DISEASE
     Dosage: 40 MG, QD
     Dates: start: 20020301
  11. VITAMIN B6 [Concomitant]
     Indication: MULTIPLE MYELOMA
     Dosage: 50 MG, QD
     Dates: start: 20021001
  12. VINCRISTINE [Concomitant]
     Indication: MULTIPLE MYELOMA
     Dosage: 1.4 MG/M2 EVERY 4 WEEKS
     Dates: start: 20020301, end: 20020801
  13. DOXIL [Concomitant]
     Indication: MULTIPLE MYELOMA
     Dosage: 40 MG/M2 EVERY 4 WEEKS
     Dates: start: 20020301, end: 20020801
  14. ADRIAMYCIN PFS [Concomitant]
  15. LOVENOX [Concomitant]
     Indication: DEEP VEIN THROMBOSIS
     Dosage: 1MG/KG AT 60MG Q12H
     Dates: start: 20021201
  16. PAROXETINE HCL [Concomitant]
     Dosage: 50 MG, QD
  17. DURAGESIC-100 [Concomitant]
     Indication: PAIN
     Dosage: 75 MCG Q72H
     Dates: start: 20020101
  18. DURAGESIC-100 [Concomitant]
     Dosage: 75 MCG Q72H
     Dates: start: 20020101
  19. DURAGESIC-100 [Concomitant]
     Dosage: 75 MCG Q72H
     Dates: start: 20020101
  20. DURAGESIC-100 [Concomitant]
     Dosage: 75 MCG Q72H
     Dates: start: 20020101
  21. DURAGESIC-100 [Concomitant]
     Dosage: 75 MCG Q72H
     Dates: start: 20020101
  22. METOPROLOL TARTRATE [Concomitant]
     Dosage: 12.5 MG, Q12H
     Dates: start: 20020301
  23. ALTACE [Concomitant]
     Dosage: 5 MG, QD
     Dates: start: 20020301
  24. ZANTAC [Concomitant]
     Dosage: 150 MG, Q12H
     Dates: start: 20020415
  25. HEPARIN [Concomitant]
     Dosage: 5000 U, BID
     Route: 058
     Dates: start: 20020301
  26. ATIVAN [Concomitant]
     Indication: ANXIETY
     Dosage: 0.5 MG, PRN
     Dates: start: 20020301
  27. PRILOSEC [Concomitant]
     Dosage: 20 MG, QD
     Dates: start: 20020301
  28. THORAZINE [Concomitant]
     Indication: HICCUPS
     Dosage: 25-50 MG EVERY SIX HOURS
  29. MIRALAX [Concomitant]
     Dosage: DAILY, PRN
  30. SENOKOT /USA/ [Concomitant]
     Dosage: UNK, QD
  31. RABEPRAZOLE SODIUM [Concomitant]
     Dosage: 20 MG, QD
     Route: 048
  32. ARANESP [Concomitant]
     Dosage: 200 UG, EVERY OTHER WEEK
     Route: 058
  33. CYTOXAN [Concomitant]
     Dosage: UNK
     Dates: start: 20020301, end: 20020801
  34. PROTONIX [Concomitant]
     Dosage: 20 MG, QD
  35. EPTIFIBATIDE [Concomitant]
  36. RIFAMPIN [Concomitant]
  37. MAGNESIUM [Concomitant]
  38. PANTOPRAZOLE [Concomitant]
  39. CEFUROXIME [Concomitant]
  40. ATROPINE [Concomitant]
  41. PROTAMINE SULFATE [Concomitant]
  42. VANCOMYCIN [Concomitant]
  43. FAMOTIDINE [Concomitant]
  44. SODIUM BICARBONATE [Concomitant]
  45. ONDANSETRON [Concomitant]
  46. HETASTARCH 6% IN 0.9% SODIUM CHLORIDE IN PLASTIC CONTAINER [Concomitant]
  47. EPINEPHRINE [Concomitant]
  48. NICARDIPINE HYDROCHLORIDE [Concomitant]
  49. FUROSEMIDE [Concomitant]
  50. MIDAZOLAM HCL [Concomitant]
  51. VECURONIUM BROMIDE [Concomitant]
  52. BISACODYL [Concomitant]
  53. DOPAMINE HCL [Concomitant]
  54. CLINDAMYCIN [Concomitant]
  55. AUGMENTIN '125' [Concomitant]
  56. OXYBUTYNIN CHLORIDE [Concomitant]
  57. POTASSIUM [Concomitant]
  58. ALTEPLASE [Concomitant]
  59. MILK OF MAGNESIA TAB [Concomitant]
  60. GABAPENTIN [Concomitant]
  61. VITAMIN D [Concomitant]
  62. CLOPIDOGREL BISULFATE [Concomitant]
  63. METHYLPREDNISOLONE [Concomitant]
  64. NITROGLYCERIN [Concomitant]
  65. PYRIDOXINE HCL [Concomitant]
     Dosage: 50 MG / DAILY
  66. CYANOCOBALAMIN [Concomitant]
  67. MORPHINE SULFATE [Concomitant]
  68. LORATADINE [Concomitant]
  69. TETANUS TOXOID [Concomitant]
  70. PNEUMOCOCCAL VACCINE [Concomitant]
  71. SENNOSIDES A+B [Concomitant]
  72. CHLORPROMAZINE [Concomitant]
  73. RAMIPRIL [Concomitant]
  74. OXYCODONE [Concomitant]
     Dosage: 5 MG / 2 TABLETS EVERY 3 HRS AS NEEDED
  75. OMEPRAZOLE [Concomitant]
     Dosage: 20 MG / DAILY
  76. PERIDEX [Concomitant]
     Dosage: UNK
  77. UNASYN [Concomitant]
  78. PLAVIX [Concomitant]

REACTIONS (77)
  - ABSCESS JAW [None]
  - ACTINOMYCOSIS [None]
  - ACUTE CORONARY SYNDROME [None]
  - ANAEMIA [None]
  - ASTHENIA [None]
  - BLOOD ALBUMIN DECREASED [None]
  - BLOOD CALCIUM DECREASED [None]
  - BLOOD GLUCOSE INCREASED [None]
  - BLOOD POTASSIUM DECREASED [None]
  - BONE DEBRIDEMENT [None]
  - BONE DISORDER [None]
  - BONE LESION [None]
  - CARDIAC FAILURE CONGESTIVE [None]
  - CARPAL TUNNEL SYNDROME [None]
  - CATARACT OPERATION [None]
  - CELLULITIS [None]
  - CEREBRAL INFARCTION [None]
  - CEREBROVASCULAR ACCIDENT [None]
  - CHILLS [None]
  - COMPRESSION FRACTURE [None]
  - CONFUSIONAL STATE [None]
  - CORONARY ARTERY BYPASS [None]
  - CORONARY ARTERY DISEASE [None]
  - CUBITAL TUNNEL SYNDROME [None]
  - DEEP VEIN THROMBOSIS [None]
  - DENTAL FISTULA [None]
  - DYSPHAGIA [None]
  - DYSPNOEA [None]
  - EDENTULOUS [None]
  - FAECAL INCONTINENCE [None]
  - FATIGUE [None]
  - GAIT DISTURBANCE [None]
  - GASTRITIS [None]
  - GASTROOESOPHAGEAL REFLUX DISEASE [None]
  - HYPERBARIC OXYGEN THERAPY [None]
  - HYPOPHAGIA [None]
  - IMPAIRED HEALING [None]
  - INSOMNIA [None]
  - JAW DISORDER [None]
  - JAW FRACTURE [None]
  - JAW OPERATION [None]
  - JUGULAR VEIN THROMBOSIS [None]
  - LEUKOENCEPHALOPATHY [None]
  - LOOSE TOOTH [None]
  - MUSCULAR WEAKNESS [None]
  - MYOCARDIAL INFARCTION [None]
  - NECK PAIN [None]
  - NEUROPATHY PERIPHERAL [None]
  - OCULAR HYPERTENSION [None]
  - ODYNOPHAGIA [None]
  - OESOPHAGITIS ULCERATIVE [None]
  - ORAL PAIN [None]
  - OSTEITIS [None]
  - OSTEOMYELITIS [None]
  - OSTEONECROSIS OF JAW [None]
  - PAIN [None]
  - PAIN IN JAW [None]
  - PARAESTHESIA [None]
  - PARAPLEGIA [None]
  - PERIODONTAL DISEASE [None]
  - PNEUMONIA [None]
  - PRIMARY SEQUESTRUM [None]
  - PROSTHESIS USER [None]
  - PYREXIA [None]
  - SEQUESTRECTOMY [None]
  - SINUS DISORDER [None]
  - SPINAL OSTEOARTHRITIS [None]
  - SWELLING [None]
  - TENDONITIS [None]
  - THROMBOCYTOPENIA [None]
  - TONGUE INJURY [None]
  - TOOTH EXTRACTION [None]
  - TOOTH LOSS [None]
  - URINARY INCONTINENCE [None]
  - VOMITING [None]
  - WEIGHT DECREASED [None]
  - WOUND DRAINAGE [None]
